FAERS Safety Report 5476875-4 (Version None)
Quarter: 2007Q4

REPORT INFORMATION
  Report Type: 
  Country: None (occurrence: None)
  Receive Date: 20071004
  Receipt Date: 20071001
  Transmission Date: 20080405
  Serious: Yes (Other)
  Sender: FDA-Public Use
  Company Number: PHNU2007DE02099

PATIENT
  Age: 73 Year
  Sex: Female
  Weight: 67 kg

DRUGS (4)
  1. DIOVAN [Suspect]
     Indication: HYPERTENSION
     Dosage: UNK, UNK
     Route: 048
     Dates: start: 19970101, end: 20070606
  2. DIOVAN [Suspect]
     Dosage: REDUCED DOSAGE
     Route: 048
     Dates: start: 20070607
  3. DIOVAN [Suspect]
     Route: 048
     Dates: start: 20070706
  4. ANTIBIOTICS [Concomitant]

REACTIONS (19)
  - ALOPECIA [None]
  - ARTHROPATHY [None]
  - ASTHENIA [None]
  - BLOOD PRESSURE INCREASED [None]
  - DRUG ERUPTION [None]
  - ERYTHEMA [None]
  - FATIGUE [None]
  - HORMONE LEVEL ABNORMAL [None]
  - HYPOHIDROSIS [None]
  - IMMUNE SYSTEM DISORDER [None]
  - INFECTION [None]
  - LICHENOID KERATOSIS [None]
  - LISTLESS [None]
  - PAROSMIA [None]
  - PSYCHIATRIC SYMPTOM [None]
  - SKIN DISORDER [None]
  - TACHYCARDIA [None]
  - TEMPERATURE INTOLERANCE [None]
  - VITREOUS OPACITIES [None]
